FAERS Safety Report 4277180-4 (Version None)
Quarter: 2004Q1

REPORT INFORMATION
  Report Type: 
  Country: None (occurrence: None)
  Receive Date: 20040120
  Receipt Date: 20040107
  Transmission Date: 20041129
  Serious: Yes (Other)
  Sender: FDA-Public Use
  Company Number: HQWYE2388612JAN04

PATIENT
  Age: 28 Year
  Sex: Female

DRUGS (3)
  1. EFFEXOR [Suspect]
     Dosage: 75 MG 1X PER 1 DAY ORAL
     Route: 048
  2. ALPRAZOLAM [Suspect]
     Dosage: 1 MG 2X PER 1 DAY
  3. ALPRAZOLAM [Suspect]
     Dosage: 1 MG 2X PER 1 DAY

REACTIONS (2)
  - DRUG INTERACTION [None]
  - HYPOTENSION [None]
